FAERS Safety Report 6997975-3 (Version None)
Quarter: 2010Q3

REPORT INFORMATION
  Report Type: 
  Country: None (occurrence: None)
  Receive Date: 20100901
  Receipt Date: 20091027
  Transmission Date: 20110219
  Serious: Yes (Hospitalization)
  Sender: FDA-Public Use
  Company Number: WAES 0910USA03564

PATIENT
  Age: 65 Year
  Sex: Female

DRUGS (1)
  1. MAXALT-MLT [Suspect]
     Indication: MIGRAINE
     Dosage: PRN/PO
     Dates: start: 20070101

REACTIONS (4)
  - DIARRHOEA [None]
  - EROSIVE OESOPHAGITIS [None]
  - FATIGUE [None]
  - GASTRITIS EROSIVE [None]
